FAERS Safety Report 23504007 (Version 4)
Quarter: 2024Q3

REPORT INFORMATION
  Report Type: Report from Study
  Country: US (occurrence: US)
  Receive Date: 20240209
  Receipt Date: 20240701
  Transmission Date: 20241017
  Serious: Yes (Hospitalization, Other)
  Sender: TAKEDA
  Company Number: US-SHIRE-US201727941

PATIENT
  Age: 77 Year
  Sex: Female

DRUGS (3)
  1. HUMAN IMMUNOGLOBULIN G [Suspect]
     Active Substance: HUMAN IMMUNOGLOBULIN G
     Indication: Immunodeficiency common variable
     Dosage: UNK
     Route: 042
  2. HUMAN IMMUNOGLOBULIN G [Suspect]
     Active Substance: HUMAN IMMUNOGLOBULIN G
     Indication: Primary immunodeficiency syndrome
  3. HUMAN IMMUNOGLOBULIN G [Suspect]
     Active Substance: HUMAN IMMUNOGLOBULIN G
     Indication: Chronic inflammatory demyelinating polyradiculoneuropathy

REACTIONS (10)
  - Chronic inflammatory demyelinating polyradiculoneuropathy [Not Recovered/Not Resolved]
  - Blood pressure decreased [Unknown]
  - Dyskinesia [Unknown]
  - Internal haemorrhage [Unknown]
  - Haematoma [Unknown]
  - Cardiac failure [Unknown]
  - Platelet count decreased [Unknown]
  - Illness [Unknown]
  - Hypercoagulation [Unknown]
  - Hyperplasia [Unknown]

NARRATIVE: CASE EVENT DATE: 20240205
